FAERS Safety Report 6110479-5 (Version None)
Quarter: 2009Q1

REPORT INFORMATION
  Report Type: 
  Country: None (occurrence: None)
  Receive Date: 20090310
  Receipt Date: 20090306
  Transmission Date: 20090719
  Serious: Yes (Death, Hospitalization)
  Sender: FDA-Public Use
  Company Number: PHHY2009MX07558

PATIENT
  Age: 86 Year
  Sex: Male

DRUGS (1)
  1. EXFORGE [Suspect]
     Indication: HYPERTENSION
     Dosage: 1 TABLET (160/5 MG) PER DAY
     Route: 048
     Dates: start: 20080717

REACTIONS (6)
  - CEREBRAL HAEMORRHAGE [None]
  - CEREBROVASCULAR ACCIDENT [None]
  - DECUBITUS ULCER [None]
  - MOBILITY DECREASED [None]
  - MULTI-ORGAN FAILURE [None]
  - PNEUMONIA [None]
